FAERS Safety Report 7231409-9 (Version None)
Quarter: 2011Q1

REPORT INFORMATION
  Report Type: 
  Country: None (occurrence: None)
  Receive Date: 20110118
  Receipt Date: 20110101
  Transmission Date: 20110831
  Serious: No
  Sender: FDA-Public Use
  Company Number: US-B.I. PHARMACEUTICALS,INC./RIDGEFIELD-2011-BP-00479BP

PATIENT
  Sex: Male
  Weight: 141.52 kg

DRUGS (13)
  1. GREEN TEA [Concomitant]
     Indication: SUPPLEMENTATION THERAPY
  2. HYDROCHLOROTHIAZIDE [Concomitant]
     Indication: FLUID IMBALANCE
     Dosage: 25 MG
     Route: 048
     Dates: start: 20100101
  3. TORSEMIDE [Concomitant]
     Indication: FLUID IMBALANCE
     Dosage: 20 MG
     Route: 048
  4. COQ1O [Concomitant]
     Indication: SUPPLEMENTATION THERAPY
  5. AVODART [Concomitant]
     Indication: PROSTATOMEGALY
     Dosage: 0.5 MG
     Route: 048
     Dates: start: 20100101
  6. NATURAL VITAMINS [Concomitant]
     Indication: SUPPLEMENTATION THERAPY
  7. PRADAXA [Suspect]
     Indication: ATRIAL FIBRILLATION
     Dosage: 300 MG
     Route: 048
     Dates: start: 20101201
  8. BISOPROLOL [Concomitant]
     Indication: CARDIAC DISORDER
     Dosage: 10 MG
     Route: 048
  9. GLUCOSAMINE [Concomitant]
     Indication: SUPPLEMENTATION THERAPY
  10. COLCHICINE [Concomitant]
     Indication: GOUT
     Route: 048
  11. LISINOPRIL [Concomitant]
     Indication: CARDIAC DISORDER
     Dosage: 5 MG
     Route: 048
     Dates: start: 20080101
  12. ALLOPURINOL [Concomitant]
     Indication: GOUT
     Dosage: 300 MG
     Route: 048
  13. AMIODARONE [Concomitant]
     Indication: HEART RATE DECREASED
     Route: 048
     Dates: start: 20060101

REACTIONS (9)
  - DYSPEPSIA [None]
  - DYSPNOEA [None]
  - AGEUSIA [None]
  - IMPATIENCE [None]
  - ANGER [None]
  - RETCHING [None]
  - DECREASED APPETITE [None]
  - ACTIVITIES OF DAILY LIVING IMPAIRED [None]
  - EPISTAXIS [None]
